FAERS Safety Report 8554874-3 (Version None)
Quarter: 2012Q3

REPORT INFORMATION
  Report Type: 
  Country: None (occurrence: None)
  Receive Date: 20120731
  Receipt Date: 20120727
  Transmission Date: 20120928
  Serious: Yes (Other)
  Sender: FDA-Public Use
  Company Number: US-PFIZER INC-2012182901

PATIENT
  Sex: Male
  Weight: 113.38 kg

DRUGS (6)
  1. LITHIUM [Concomitant]
     Dosage: UNK
  2. TRAMADOL [Concomitant]
     Dosage: UNK
  3. LYRICA [Suspect]
     Indication: FIBROMYALGIA
     Dosage: UNK, 2X/DAY
     Route: 048
  4. NEURONTIN [Suspect]
     Indication: FIBROMYALGIA
     Dosage: UNK, 3X/DAY
     Route: 048
  5. SAVELLA [Concomitant]
     Dosage: UNK
  6. ZANAFLEX [Concomitant]
     Dosage: UNK

REACTIONS (2)
  - DRUG DEPENDENCE [None]
  - DRUG INEFFECTIVE [None]
